FAERS Safety Report 5000227-4 (Version None)
Quarter: 2006Q2

REPORT INFORMATION
  Report Type: 
  Country: None (occurrence: None)
  Receive Date: 20060511
  Receipt Date: 20060427
  Transmission Date: 20061013
  Serious: Yes (Other)
  Sender: FDA-Public Use
  Company Number: US-MERCK-0605USA00339

PATIENT
  Sex: Female

DRUGS (2)
  1. MAXALT-MLT [Suspect]
     Indication: MIGRAINE
     Route: 048
     Dates: start: 20060301, end: 20060301
  2. EXCEDRIN (MIGRAINE) [Concomitant]
     Route: 065
     Dates: start: 20060301

REACTIONS (1)
  - CONVULSION [None]
